FAERS Safety Report 17837510 (Version 1)
Quarter: 2020Q2

REPORT INFORMATION
  Report Type: Spontaneous
  Country: FR (occurrence: FR)
  Receive Date: 20200528
  Receipt Date: 20200528
  Transmission Date: 20200714
  Serious: Yes (Other)
  Sender: FDA-Public Use
  Company Number: NVSC2020FR144073

PATIENT
  Sex: Male

DRUGS (6)
  1. ALENDRONATE SODIUM TRIHYDRATE,CALCIUM CARBONATE,COLECALCIFEROL [Suspect]
     Active Substance: ALENDRONATE SODIUM\CALCIUM CARBONATE\CHOLECALCIFEROL
     Indication: OSTEOPOROSIS
     Dosage: 70 MG, QW
     Route: 048
     Dates: start: 20120117
  2. BROMAZEPAM [Suspect]
     Active Substance: BROMAZEPAM
     Indication: ANXIETY
     Dosage: UNK UNK, PRN
     Route: 065
     Dates: start: 20140314
  3. TAMSULOSIN HYDROCHLORIDE. [Suspect]
     Active Substance: TAMSULOSIN HYDROCHLORIDE
     Indication: PROSTATIC ADENOMA
     Dosage: 4 MG, QD
     Route: 048
     Dates: start: 20120417
  4. LERCANIDIPINE HYDROCHLORIDE [Suspect]
     Active Substance: LERCANIDIPINE HYDROCHLORIDE
     Indication: HYPERTENSION
     Dosage: 30 MG, QD
     Route: 048
     Dates: start: 20090612
  5. TIVICAY [Suspect]
     Active Substance: DOLUTEGRAVIR SODIUM
     Indication: PROPHYLAXIS AGAINST HIV INFECTION
     Dosage: 50 MG, QD
     Route: 048
     Dates: start: 20200115, end: 20200120
  6. LAMIVUDINE. [Suspect]
     Active Substance: LAMIVUDINE
     Indication: PROPHYLAXIS AGAINST HIV INFECTION
     Dosage: 400 MG, QD
     Route: 048
     Dates: start: 20151122

REACTIONS (7)
  - Enuresis [Recovering/Resolving]
  - Disturbance in attention [Recovering/Resolving]
  - Psychomotor retardation [Recovering/Resolving]
  - Overdose [Unknown]
  - Somnolence [Recovering/Resolving]
  - Hypersomnia [Unknown]
  - Sleep disorder [Recovering/Resolving]

NARRATIVE: CASE EVENT DATE: 20120417
